FAERS Safety Report 8122960-8 (Version None)
Quarter: 2012Q1

REPORT INFORMATION
  Report Type: 
  Country: None (occurrence: None)
  Receive Date: 20120208
  Receipt Date: 20120201
  Transmission Date: 20120608
  Serious: Yes (Other)
  Sender: FDA-Public Use
  Company Number: BR-ABBOTT-12P-020-0900836-00

PATIENT
  Sex: Male
  Weight: 70 kg

DRUGS (1)
  1. DEPAKOTE [Suspect]
     Indication: INFANTILE SPASMS
     Route: 048

REACTIONS (2)
  - DRUG INEFFECTIVE [None]
  - INFANTILE SPASMS [None]
